FAERS Safety Report 9818426 (Version 2)
Quarter: 2014Q1

REPORT INFORMATION
  Report Type: Spontaneous
  Country: GB (occurrence: GB)
  Receive Date: 20140115
  Receipt Date: 20140115
  Transmission Date: 20141002
  Serious: Yes (Other)
  Sender: FDA-Public Use
  Company Number: GB-BANPHARM-20142002

PATIENT
  Age: 47 Year
  Sex: 0
  Weight: 80 kg

DRUGS (5)
  1. IBUPROFEN UNKNOWN PRODUCT [Suspect]
     Indication: HEADACHE
     Dosage: 200 MG, 2 DF, QD,
     Route: 048
  2. CERAZETTE [Concomitant]
  3. FLUTIFORM [Concomitant]
  4. LANSOPRAZOLE [Concomitant]
  5. VNETOLIN [Concomitant]

REACTIONS (7)
  - Abdominal distension [Recovering/Resolving]
  - Hypersensitivity [Recovering/Resolving]
  - Dyspepsia [Recovering/Resolving]
  - Feeling hot [Recovering/Resolving]
  - Urticaria [Recovering/Resolving]
  - Rash [Recovering/Resolving]
  - Wheezing [Recovering/Resolving]
